FAERS Safety Report 13435148 (Version 2)
Quarter: 2017Q4

REPORT INFORMATION
  Report Type: Spontaneous
  Country: US (occurrence: US)
  Receive Date: 20170412
  Receipt Date: 20171204
  Transmission Date: 20180320
  Serious: Yes (Other)
  Sender: FDA-Public Use
  Company Number: US-PFIZER INC-2017133125

PATIENT
  Age: 67 Year
  Sex: Male
  Weight: 97.5 kg

DRUGS (1)
  1. GENOTROPIN MQ [Suspect]
     Active Substance: SOMATROPIN
     Indication: MULTIPLE SCLEROSIS
     Dosage: 0.8 MG, 1X/DAY

REACTIONS (5)
  - Cardiac failure [Unknown]
  - Psoriasis [Unknown]
  - Foot fracture [Recovering/Resolving]
  - Arthritis [Unknown]
  - Renal failure [Unknown]

NARRATIVE: CASE EVENT DATE: 20171112
